FAERS Safety Report 7264467-6 (Version None)
Quarter: 2011Q1

REPORT INFORMATION
  Report Type: 
  Country: None (occurrence: None)
  Receive Date: 20110131
  Receipt Date: 20110119
  Transmission Date: 20110831
  Serious: Yes (Other)
  Sender: FDA-Public Use
  Company Number: JP-JNJFOC-20080900071

PATIENT
  Sex: Female
  Weight: 46 kg

DRUGS (17)
  1. FUNGUARD [Concomitant]
     Route: 042
  2. MEROPENEM [Suspect]
     Indication: FEBRILE NEUTROPENIA
     Route: 042
  3. IDAMYCIN [Concomitant]
     Indication: ACUTE MYELOID LEUKAEMIA
     Route: 042
  4. IDARUBICIN HYDROCHLORIDE [Interacting]
     Indication: ACUTE MYELOID LEUKAEMIA
     Route: 042
  5. SOLDEM 3A [Concomitant]
     Indication: ACUTE MYELOID LEUKAEMIA
     Route: 041
  6. MAXIPIME [Concomitant]
     Indication: FEBRILE NEUTROPENIA
     Route: 042
  7. NEUTROGIN [Concomitant]
     Indication: FEBRILE NEUTROPENIA
     Route: 042
  8. GASTER [Concomitant]
     Indication: PROPHYLAXIS
     Route: 048
  9. CIPROFLOXACIN [Concomitant]
     Indication: PROPHYLAXIS
     Route: 048
  10. SUPRECUR MP [Concomitant]
     Indication: MENORRHAGIA
     Route: 058
  11. SOLDEM 3A [Concomitant]
     Route: 041
  12. ITRIZOLE [Suspect]
     Indication: ANTIFUNGAL PROPHYLAXIS
     Route: 041
  13. ZYLORIC [Concomitant]
     Indication: PROPHYLAXIS
     Route: 048
  14. SOLDEM 3A [Concomitant]
     Route: 041
  15. ITRIZOLE [Suspect]
     Route: 048
  16. CYLOCIDE [Interacting]
     Indication: ACUTE MYELOID LEUKAEMIA
     Route: 041
  17. GRANISETRON HYDROCHLORIDE [Concomitant]
     Indication: ACUTE MYELOID LEUKAEMIA
     Route: 042

REACTIONS (6)
  - MENORRHAGIA [None]
  - FLATULENCE [None]
  - NEUTROPENIA [None]
  - DRUG INTERACTION [None]
  - HEPATIC FUNCTION ABNORMAL [None]
  - DEVICE OCCLUSION [None]
